FAERS Safety Report 9038743 (Version 1)
Quarter: 2013Q1

REPORT INFORMATION
  Report Type: Spontaneous
  Country: US (occurrence: US)
  Receive Date: 20130129
  Receipt Date: 20130129
  Transmission Date: 20140127
  Serious: No
  Sender: FDA-Public Use
  Company Number: US-ABBOTT-12P-163-0934695-00

PATIENT
  Sex: Male
  Weight: 163.89 kg

DRUGS (7)
  1. HUMIRA 40 MG/0.8 ML PEN [Suspect]
     Indication: CROHN^S DISEASE
     Route: 058
     Dates: start: 200809, end: 201005
  2. HUMIRA 40 MG/0.8 ML PEN [Suspect]
     Dosage: 160 MG LOADING DOSE ON DAY 1
     Route: 058
     Dates: start: 201204, end: 201204
  3. HUMIRA 40 MG/0.8 ML PEN [Suspect]
     Dosage: 80 MG ON DAY 15
     Dates: start: 201204, end: 201204
  4. IMURAN [Concomitant]
     Indication: CROHN^S DISEASE
  5. ASACOL [Concomitant]
     Indication: CROHN^S DISEASE
  6. FOLIC ACID [Concomitant]
     Indication: VITAMIN SUPPLEMENTATION
  7. COUMADIN [Concomitant]
     Indication: ATRIAL FIBRILLATION

REACTIONS (2)
  - Rectal haemorrhage [Recovering/Resolving]
  - Crohn^s disease [Not Recovered/Not Resolved]
